FAERS Safety Report 4477499-8 (Version None)
Quarter: 2004Q4

REPORT INFORMATION
  Report Type: 
  Country: None (occurrence: None)
  Receive Date: 20041018
  Receipt Date: 20041013
  Transmission Date: 20050328
  Serious: Yes (Hospitalization)
  Sender: FDA-Public Use
  Company Number: 200416846US

PATIENT
  Age: 67 Year
  Sex: Male

DRUGS (18)
  1. WELLBUTRIN [Suspect]
     Indication: DEPRESSION
     Route: 048
  2. TELITHROMYCIN [Suspect]
     Dosage: 800MG PER DAY
     Route: 048
     Dates: start: 20040902
  3. ANTIBIOTIC (UNSPECIFIED) [Suspect]
     Route: 048
  4. METOPROLOL [Concomitant]
  5. LEXAPRO [Concomitant]
  6. ASPIRIN [Concomitant]
  7. ALLOPURINOL [Concomitant]
  8. HYDROCHLOROTHIAZIDE [Concomitant]
  9. LASIX [Concomitant]
  10. POTASSIUM CHLORIDE [Concomitant]
  11. VOLTAREN [Concomitant]
  12. ACEON [Concomitant]
  13. HYDROCODONE [Concomitant]
  14. MULTI-VITAMIN [Concomitant]
  15. COUMADIN [Concomitant]
     Indication: PROPHYLAXIS
  16. DETROL [Concomitant]
  17. UROXATRAL [Concomitant]
  18. CALCIUM [Concomitant]

REACTIONS (8)
  - CELLULITIS [None]
  - CONDITION AGGRAVATED [None]
  - DYSKINESIA [None]
  - HALLUCINATION, VISUAL [None]
  - PARASOMNIA [None]
  - PNEUMONIA [None]
  - PYREXIA [None]
  - RESTLESSNESS [None]
